FAERS Safety Report 14196517 (Version 2)
Quarter: 2017Q4

REPORT INFORMATION
  Report Type: Spontaneous
  Country: FI (occurrence: FI)
  Receive Date: 20171116
  Receipt Date: 20171127
  Transmission Date: 20180321
  Serious: Yes (Hospitalization, Other)
  Sender: FDA-Public Use
  Company Number: FI-CELLTRION INC.-2017FI015721

PATIENT

DRUGS (5)
  1. INFLECTRA [Suspect]
     Active Substance: INFLIXIMAB-DYYB
     Indication: COLITIS ULCERATIVE
     Dosage: 300 MG, FIRST INFUSION
     Route: 042
     Dates: start: 20171020, end: 20171020
  2. INFLECTRA [Suspect]
     Active Substance: INFLIXIMAB-DYYB
     Dosage: 300 MG, SECOND INFUSION
     Route: 042
     Dates: start: 20171031, end: 20171031
  3. CYCLOSPORIN [Suspect]
     Active Substance: CYCLOSPORINE
     Indication: COLITIS ULCERATIVE
     Dosage: 125 MG, UNK
     Route: 042
  4. ASACOL [Concomitant]
     Active Substance: MESALAMINE
     Dosage: 1600 MG, BID
     Route: 065
  5. AZAMUN [Concomitant]
     Active Substance: AZATHIOPRINE
     Dosage: 50 MG, BID

REACTIONS (3)
  - Colitis [Unknown]
  - Drug interaction [Unknown]
  - Sepsis [Unknown]
